FAERS Safety Report 7898005-1 (Version None)
Quarter: 2011Q4

REPORT INFORMATION
  Report Type: 
  Country: None (occurrence: None)
  Receive Date: 20111107
  Receipt Date: 20111107
  Transmission Date: 20120403
  Serious: Yes (Other)
  Sender: FDA-Public Use
  Company Number: None

PATIENT
  Age: 36 Year
  Sex: Female
  Weight: 93.44 kg

DRUGS (1)
  1. LEVAQUIN [Suspect]
     Indication: URINARY TRACT INFECTION
     Dosage: 500MG
     Route: 048
     Dates: start: 20111030, end: 20111101

REACTIONS (8)
  - NAUSEA [None]
  - MALAISE [None]
  - VOMITING [None]
  - MUSCULOSKELETAL CHEST PAIN [None]
  - DYSURIA [None]
  - CHEST PAIN [None]
  - VENTRICULAR EXTRASYSTOLES [None]
  - BACK PAIN [None]
